FAERS Safety Report 10492291 (Version 1)
Quarter: 2014Q4

REPORT INFORMATION
  Report Type: Spontaneous
  Country: US (occurrence: US)
  Receive Date: 20141002
  Receipt Date: 20141002
  Transmission Date: 20150528
  Serious: No
  Sender: FDA-Public Use
  Company Number: US-GLAXOSMITHKLINE-A1068744A

PATIENT
  Sex: Male

DRUGS (2)
  1. VENTOLIN [Suspect]
     Active Substance: ALBUTEROL SULFATE
     Indication: PRODUCT USED FOR UNKNOWN INDICATION
     Dates: start: 20130909
  2. ADVAIR HFA [Suspect]
     Active Substance: FLUTICASONE PROPIONATE\SALMETEROL XINAFOATE
     Indication: DYSPNOEA
     Route: 065
     Dates: start: 20130906

REACTIONS (6)
  - Myalgia [Recovered/Resolved]
  - Bone pain [Recovered/Resolved]
  - Lung disorder [Unknown]
  - Drug administration error [Unknown]
  - Dysphonia [Unknown]
  - Multiple allergies [Unknown]

NARRATIVE: CASE EVENT DATE: 2013
